FAERS Safety Report 6307728-7 (Version None)
Quarter: 2009Q3

REPORT INFORMATION
  Report Type: 
  Country: None (occurrence: None)
  Receive Date: 20090813
  Receipt Date: 20090804
  Transmission Date: 20100115
  Serious: Yes (Other)
  Sender: FDA-Public Use
  Company Number: US-ASTRAZENECA-2009UW21751

PATIENT
  Age: 70 Year
  Sex: Female

DRUGS (5)
  1. NEXIUM [Suspect]
     Route: 048
  2. NOVOLOG [Concomitant]
  3. GABAPENTIN [Concomitant]
     Indication: DIABETIC NEUROPATHY
  4. ZOLOFT [Concomitant]
  5. ATIVAN [Concomitant]

REACTIONS (4)
  - BLINDNESS [None]
  - CAROTID ARTERY OCCLUSION [None]
  - DIABETES MELLITUS [None]
  - NEUROPATHY PERIPHERAL [None]
